FAERS Safety Report 17708217 (Version 2)
Quarter: 2020Q2

REPORT INFORMATION
  Report Type: Spontaneous
  Country: US (occurrence: US)
  Receive Date: 20200425
  Receipt Date: 20200619
  Transmission Date: 20200714
  Serious: No
  Sender: FDA-Public Use
  Company Number: US-ASTRAZENECA-2020SE52142

PATIENT
  Sex: Female
  Weight: 105.7 kg

DRUGS (1)
  1. BYDUREON BCISE [Suspect]
     Active Substance: EXENATIDE
     Indication: DIABETES MELLITUS
     Route: 058
     Dates: start: 202003

REACTIONS (7)
  - Memory impairment [Unknown]
  - Device malfunction [Unknown]
  - Injection site extravasation [Unknown]
  - Blood glucose increased [Unknown]
  - Weight decreased [Unknown]
  - Circumstance or information capable of leading to device use error [Unknown]
  - Injection site thrombosis [Unknown]
